FAERS Safety Report 13645015 (Version 1)
Quarter: 2017Q2

REPORT INFORMATION
  Report Type: Spontaneous
  Country: US (occurrence: US)
  Receive Date: 20170612
  Receipt Date: 20170612
  Transmission Date: 20170830
  Serious: No
  Sender: FDA-Public Use
  Company Number: US-CARDINAL HEALTH 414, LLC-2021865

PATIENT
  Age: 64 Year
  Sex: Female
  Weight: 43.64 kg

DRUGS (3)
  1. LEXISCAN [Concomitant]
     Active Substance: REGADENOSON
     Dates: start: 20160928, end: 20160928
  2. AMINOPHYLLINE. [Concomitant]
     Active Substance: AMINOPHYLLINE
     Dates: start: 20160928, end: 20160928
  3. TECHNETIUM TC-99M SESTAMIBI KIT [Suspect]
     Active Substance: TECHNETIUM TC-99M SESTAMIBI
     Indication: SCAN MYOCARDIAL PERFUSION
     Route: 042
     Dates: start: 20160928, end: 20160928

REACTIONS (3)
  - Feeling hot [Recovering/Resolving]
  - Palmar-plantar erythrodysaesthesia syndrome [Recovering/Resolving]
  - Pruritus [Recovering/Resolving]

NARRATIVE: CASE EVENT DATE: 20160928
